FAERS Safety Report 5170145-X (Version None)
Quarter: 2006Q4

REPORT INFORMATION
  Report Type: 
  Country: None (occurrence: None)
  Receive Date: 20061212
  Receipt Date: 20061128
  Transmission Date: 20070319
  Serious: Yes (Hospitalization)
  Sender: FDA-Public Use
  Company Number: DE-ELI_LILLY_AND_COMPANY-DE200611005209

PATIENT
  Age: 83 Year
  Sex: Female

DRUGS (8)
  1. FORTEO [Suspect]
     Route: 058
     Dates: start: 20060802, end: 20060918
  2. ATACAND HCT [Concomitant]
  3. METOPROLOL SUCCINATE [Concomitant]
     Dosage: 200 MG, UNK
  4. OXAZEPAM [Concomitant]
     Dosage: 10 MG, DAILY (1/D)
  5. ZOLPIDEM TARTRATE [Concomitant]
  6. PANTOZOL /GFR/ [Concomitant]
  7. TRAMAL /GFR/ [Concomitant]
     Dosage: UNK, AS NEEDED
  8. CALCIMAGON-D3 /SCH/ [Concomitant]
     Dosage: UNK, 2/D

REACTIONS (4)
  - ANAEMIA [None]
  - DYSPNOEA [None]
  - FATIGUE [None]
  - OVERWEIGHT [None]
